FAERS Safety Report 23064032 (Version 1)
Quarter: 2023Q4

REPORT INFORMATION
  Report Type: Spontaneous
  Country: JP (occurrence: JP)
  Receive Date: 20231013
  Receipt Date: 20231013
  Transmission Date: 20240109
  Serious: Yes (Hospitalization, Disabling, Other)
  Sender: FDA-Public Use
  Company Number: JP-Eisai Medical Research-EC-2019-059594

PATIENT

DRUGS (3)
  1. ZONISAMIDE [Suspect]
     Active Substance: ZONISAMIDE
     Indication: Epilepsy
     Dosage: 50 MG, QD (EXCEGRAN ORAL POWDER 20% (ZONISAMIDE)
     Route: 048
     Dates: start: 20180823, end: 20180829
  2. ZONISAMIDE [Suspect]
     Active Substance: ZONISAMIDE
     Dosage: 40 MG BID, EXCEGRAN POWDER
     Route: 048
     Dates: start: 20180830, end: 20180925
  3. TEGRETOL [Concomitant]
     Active Substance: CARBAMAZEPINE
     Dosage: 100 MG  BID, FINE GRANULES
     Dates: start: 20180529, end: 20180925

REACTIONS (3)
  - Type 1 diabetes mellitus [Unknown]
  - Drug reaction with eosinophilia and systemic symptoms [Recovering/Resolving]
  - Pancreatitis [Unknown]

NARRATIVE: CASE EVENT DATE: 20180925
